FAERS Safety Report 7053326-X (Version None)
Quarter: 2010Q4

REPORT INFORMATION
  Report Type: 
  Country: None (occurrence: None)
  Receive Date: 20101020
  Receipt Date: 20101018
  Transmission Date: 20110411
  Serious: Yes (Death, Other)
  Sender: FDA-Public Use
  Company Number: PHHY2010DE64530

PATIENT
  Sex: Female

DRUGS (6)
  1. EXELON [Suspect]
     Indication: FALL
     Dosage: 4.6 MG, QD
     Route: 062
     Dates: start: 20100805
  2. EXELON [Suspect]
     Indication: DEMENTIA WITH LEWY BODIES
  3. EXELON [Suspect]
     Indication: PARKINSON'S DISEASE
  4. EXELON [Suspect]
     Indication: HALLUCINATION
  5. MADOPAR [Concomitant]
     Dosage: 3 DF, QD
  6. SEROQUEL [Concomitant]
     Dosage: 100 MG, QD

REACTIONS (2)
  - DEATH [None]
  - PARKINSON'S DISEASE [None]
